FAERS Safety Report 24163983 (Version 1)
Quarter: 2024Q3

REPORT INFORMATION
  Report Type: Spontaneous
  Country: US (occurrence: US)
  Receive Date: 20240801
  Receipt Date: 20240801
  Transmission Date: 20241017
  Serious: Yes (Hospitalization)
  Sender: UPSHER-SMITH
  Company Number: US-UPSHER-SMITH LABORATORIES, LLC-2024USL00380

PATIENT
  Age: 0 Year

DRUGS (2)
  1. VIGADRONE [Suspect]
     Active Substance: VIGABATRIN
     Indication: Infantile spasms
     Dosage: 500 MG (20 ML), 1X/DAY, EVERY MORNING
     Route: 048
     Dates: start: 20240409
  2. VIGADRONE [Suspect]
     Active Substance: VIGABATRIN
     Dosage: 1000 MG (20 ML) 1X/DAY, EVERY EVENING
     Route: 048
     Dates: start: 20240409

REACTIONS (1)
  - Infection [Unknown]

NARRATIVE: CASE EVENT DATE: 20240401
